FAERS Safety Report 10308998 (Version 1)
Quarter: 2014Q3

REPORT INFORMATION
  Report Type: Report from Study
  Country: US (occurrence: US)
  Receive Date: 20140716
  Receipt Date: 20140716
  Transmission Date: 20150326
  Serious: Yes (Hospitalization, Other)
  Sender: FDA-Public Use
  Company Number: US-JNJFOC-20140706105

PATIENT
  Age: 71 Year
  Sex: Female

DRUGS (2)
  1. NUCYNTA ER [Suspect]
     Active Substance: TAPENTADOL HYDROCHLORIDE
     Indication: PRODUCT USED FOR UNKNOWN INDICATION
     Route: 065
  2. AN UNKNOWN MEDICATION [Interacting]
     Active Substance: UNSPECIFIED INGREDIENT
     Indication: PRODUCT USED FOR UNKNOWN INDICATION
     Route: 065

REACTIONS (9)
  - Abnormal behaviour [Recovered/Resolved]
  - Mental status changes [Recovered/Resolved]
  - Suicide attempt [Recovered/Resolved]
  - Convulsion [Recovered/Resolved]
  - Drug interaction [Recovered/Resolved]
  - Pupil dilation procedure [Unknown]
  - Overdose [Recovered/Resolved]
  - Confusional state [Recovered/Resolved]
  - Hypertension [Unknown]
